FAERS Safety Report 5136782-3 (Version None)
Quarter: 2006Q4

REPORT INFORMATION
  Report Type: 
  Country: None (occurrence: None)
  Receive Date: 20061023
  Receipt Date: 20061010
  Transmission Date: 20070319
  Serious: Yes (Hospitalization)
  Sender: FDA-Public Use
  Company Number: 002#4#2006-00296

PATIENT
  Age: 65 Year
  Sex: Female

DRUGS (15)
  1. ISOSORBIDE-MONONITRATE-125MG-EXTENDED-RELEASE-TAB) [Suspect]
     Indication: CHEST PAIN
     Dosage: 120MG, 1 IN 1 D, ORAL
     Route: 048
     Dates: start: 20050101
  2. BISOPROLOL FUMARATE [Concomitant]
  3. BENAZEPRIL HYDROCHLORIDE [Concomitant]
  4. DULOXETINE-HYDROCHLORIDE [Concomitant]
  5. DIGOXIN [Concomitant]
  6. FUROSEMIDE [Concomitant]
  7. LEVOTHYROXINE SODIUM [Concomitant]
  8. ESOMEPRAZOLE MAGNESIUM [Concomitant]
  9. HYOSCYAMINE-SULFATE [Concomitant]
  10. ACETYLSALICYLIC ACID SRT [Concomitant]
  11. DOMPERIDONE [Concomitant]
  12. TICLOPIDINE HYDROCHLORIDE [Concomitant]
  13. POTASSIUM CHLORIDE [Concomitant]
  14. DARVOCET [Concomitant]
  15. ALPRAZOLAM [Concomitant]

REACTIONS (7)
  - CARDIAC FAILURE CONGESTIVE [None]
  - CHEST PAIN [None]
  - DRUG INEFFECTIVE [None]
  - DYSPHAGIA [None]
  - MYOCARDIAL INFARCTION [None]
  - PHARMACEUTICAL PRODUCT COMPLAINT [None]
  - RASH [None]
